FAERS Safety Report 6067898-5 (Version None)
Quarter: 2009Q1

REPORT INFORMATION
  Report Type: 
  Country: None (occurrence: None)
  Receive Date: 20090203
  Receipt Date: 20090123
  Transmission Date: 20090719
  Serious: Yes (Hospitalization)
  Sender: FDA-Public Use
  Company Number: 2009PL000034

PATIENT
  Age: 29 Year
  Sex: Female
  Weight: 58 kg

DRUGS (6)
  1. AZATHIOPRINE [Suspect]
     Indication: CROHN'S DISEASE
     Dosage: 2.5 MG/KG;QD;PO
     Route: 048
     Dates: start: 20070713
  2. AZATHIOPRINE [Suspect]
     Indication: CROHN'S DISEASE
     Dosage: 2.5 MG/KG;QD;PO
     Route: 048
     Dates: start: 20070713
  3. INFLIXIMAB, RECOMBINANT (INFLIXIMAB, RECOMBINANT) LYOPHILIZED POWDER ( [Suspect]
     Indication: CROHN'S DISEASE
     Dosage: ; IV
     Route: 042
     Dates: start: 20070713
  4. AZATHIOPRINE [Concomitant]
  5. STREPSILS [Concomitant]
  6. PARACETAMOL [Concomitant]

REACTIONS (1)
  - APPENDICITIS [None]
